FAERS Safety Report 25718772 (Version 1)
Quarter: 2025Q3

REPORT INFORMATION
  Report Type: Spontaneous
  Country: US (occurrence: US)
  Receive Date: 20250824
  Receipt Date: 20250824
  Transmission Date: 20251020
  Serious: No
  Sender: ELI LILLY AND COMPANY
  Company Number: US-ELI_LILLY_AND_COMPANY-US202508013116

PATIENT
  Age: 66 Year
  Sex: Female
  Weight: 99.8 kg

DRUGS (5)
  1. BASAGLAR [Suspect]
     Active Substance: INSULIN GLARGINE
     Indication: Product used for unknown indication
     Route: 065
  2. RECORLEV [Concomitant]
     Active Substance: LEVOKETOCONAZOLE
     Indication: Cushing^s syndrome
     Dosage: 150 MG, DAILY
     Route: 048
     Dates: start: 20220804
  3. NOVOLOG [Concomitant]
     Active Substance: INSULIN ASPART
     Indication: Product used for unknown indication
     Route: 065
  4. OZEMPIC [Concomitant]
     Active Substance: SEMAGLUTIDE
     Indication: Product used for unknown indication
     Route: 065
     Dates: end: 2022
  5. MULTIVITAMIN [ASCORBIC ACID;BIOTIN;CALCIUM;CH [Concomitant]
     Indication: Product used for unknown indication

REACTIONS (13)
  - Fall [Unknown]
  - Bone loss [Unknown]
  - Hair growth abnormal [Unknown]
  - Hair colour changes [Unknown]
  - Spinal column injury [Unknown]
  - Tooth disorder [Unknown]
  - Blood cholesterol increased [Unknown]
  - Pain [Unknown]
  - Nerve compression [Unknown]
  - Dysphagia [Unknown]
  - Dizziness [Unknown]
  - Hyperhidrosis [Unknown]
  - Fluid retention [Unknown]

NARRATIVE: CASE EVENT DATE: 20220814
